FAERS Safety Report 17259834 (Version 2)
Quarter: 2020Q2

REPORT INFORMATION
  Report Type: Report from Study
  Country: None (occurrence: US)
  Receive Date: 20200111
  Receipt Date: 20200415
  Transmission Date: 20200713
  Serious: Yes (Hospitalization)
  Sender: FDA-Public Use
  Company Number: US-ABBVIE-20K-163-3227388-00

PATIENT
  Age: 57 Year
  Sex: Female
  Weight: 98.06 kg

DRUGS (2)
  1. HUMIRA [Suspect]
     Active Substance: ADALIMUMAB
     Indication: RHEUMATOID ARTHRITIS
     Route: 058
  2. PREDNISONE. [Concomitant]
     Active Substance: PREDNISONE
     Indication: RHEUMATOID ARTHRITIS

REACTIONS (3)
  - Poor venous access [Recovered/Resolved]
  - Haematemesis [Recovered/Resolved]
  - Gastric haemorrhage [Recovered/Resolved]

NARRATIVE: CASE EVENT DATE: 20191205
